FAERS Safety Report 6120834-5 (Version None)
Quarter: 2009Q1

REPORT INFORMATION
  Report Type: 
  Country: None (occurrence: None)
  Receive Date: 20090317
  Receipt Date: 20090310
  Transmission Date: 20090719
  Serious: Yes (Hospitalization)
  Sender: FDA-Public Use
  Company Number: FR-ROCHE-613631

PATIENT
  Sex: Male

DRUGS (4)
  1. RIVOTRIL [Suspect]
     Indication: DRUG USE FOR UNKNOWN INDICATION
     Dosage: FREQ: ONCE
     Route: 042
     Dates: start: 20081223, end: 20081223
  2. XYREM [Suspect]
     Indication: DRUG USE FOR UNKNOWN INDICATION
     Route: 048
     Dates: start: 20081127
  3. XYREM [Suspect]
     Route: 048
     Dates: start: 20081203
  4. XYREM [Suspect]
     Route: 048
     Dates: start: 20081223, end: 20081223

REACTIONS (1)
  - CARDIO-RESPIRATORY ARREST [None]
